FAERS Safety Report 4555396-7 (Version None)
Quarter: 2005Q1

REPORT INFORMATION
  Report Type: 
  Country: None (occurrence: None)
  Receive Date: 20050118
  Receipt Date: 20050118
  Transmission Date: 20050727
  Serious: Yes (Hospitalization)
  Sender: FDA-Public Use
  Company Number: None

PATIENT
  Age: 68 Year
  Sex: Male

DRUGS (10)
  1. WARFARIN SODIUM [Suspect]
     Indication: THROMBOSIS
     Dosage: 7.5 MG QHS ORAL
     Route: 048
     Dates: start: 20030804, end: 20041116
  2. ADVAIR DISKUS 100/50 [Concomitant]
  3. ALBUTEROL 90/UORATRIO [Concomitant]
  4. ASPIRIN [Concomitant]
  5. ENALAPRIL MALEATE [Concomitant]
  6. FUROSEMIDE [Concomitant]
  7. METOPROLOL TARTRATE [Concomitant]
  8. TOLNAFTATE LACQUER 1% [Concomitant]
  9. SIMVASTATIN [Concomitant]
  10. NC SOLN [Concomitant]

REACTIONS (9)
  - BARRETT'S OESOPHAGUS [None]
  - CELLULITIS [None]
  - FAECAL OCCULT BLOOD POSITIVE [None]
  - GASTRITIS EROSIVE [None]
  - HAEMATOMA [None]
  - INTERNATIONAL NORMALISED RATIO INCREASED [None]
  - LOCALISED INFECTION [None]
  - OESOPHAGEAL CANDIDIASIS [None]
  - SYNCOPE [None]
